FAERS Safety Report 9562640 (Version 2)
Quarter: 2013Q4

REPORT INFORMATION
  Report Type: Spontaneous
  Country: US (occurrence: US)
  Receive Date: 20130927
  Receipt Date: 20131007
  Transmission Date: 20140711
  Serious: Yes (Hospitalization, Other)
  Sender: FDA-Public Use
  Company Number: US-BAXTER-2013BAX037516

PATIENT
  Age: 71 Year
  Sex: Female

DRUGS (4)
  1. DIANEAL LOW CALCIUM [Suspect]
     Indication: RENAL FAILURE CHRONIC
     Dosage: TOTAL FILL OF 12 LITERS
     Route: 033
     Dates: start: 20120905
  2. DIANEAL LOW CALCIUM [Suspect]
     Dosage: LAST FILL 2 LITERS
     Route: 033
     Dates: start: 20120905
  3. DIANEAL LOW CALCIUM [Suspect]
     Indication: RENAL FAILURE CHRONIC
     Dosage: TOTAL FILL OF 12 LITERS
     Route: 033
     Dates: start: 20130905
  4. DIANEAL LOW CALCIUM [Suspect]
     Dosage: LAST FILL OF 2 LITERS
     Route: 033
     Dates: start: 20130905

REACTIONS (3)
  - Dizziness [Recovered/Resolved]
  - Hypoglycaemia [Recovered/Resolved]
  - Hypophagia [Unknown]
